FAERS Safety Report 22625810 (Version 1)
Quarter: 2023Q2

REPORT INFORMATION
  Report Type: Spontaneous
  Country: US (occurrence: None)
  Receive Date: 20230617
  Receipt Date: 20230617
  Transmission Date: 20230721
  Serious: Yes (Hospitalization)
  Sender: FDA-Public Use
  Company Number: None

PATIENT
  Age: 7 Year
  Sex: Female

DRUGS (1)
  1. ZIEXTENZO [Suspect]
     Active Substance: PEGFILGRASTIM-BMEZ
     Indication: Brain neoplasm malignant
     Dosage: 1.8MG  ONCE EVERY 28 DAYS SUBCUTANEOUS?
     Route: 058
     Dates: start: 20230421

REACTIONS (2)
  - Febrile neutropenia [None]
  - Viral infection [None]

NARRATIVE: CASE EVENT DATE: 20230501
